FAERS Safety Report 4446734-4 (Version None)
Quarter: 2004Q3

REPORT INFORMATION
  Report Type: 
  Country: None (occurrence: None)
  Receive Date: 20040910
  Receipt Date: 20040823
  Transmission Date: 20050211
  Serious: No
  Sender: FDA-Public Use
  Company Number: 2004AP04437

PATIENT
  Age: 82 Year
  Sex: Female

DRUGS (10)
  1. OMEPRAL [Suspect]
     Indication: REFLUX OESOPHAGITIS
     Dosage: 10 MG DAILY PO
     Route: 048
     Dates: start: 20040708, end: 20040710
  2. ESUCOPAN [Concomitant]
  3. STROCAIN [Concomitant]
  4. FOSAMAX [Concomitant]
  5. CALCIUM LACTATE [Concomitant]
  6. OSTEN [Concomitant]
  7. SELBEX [Concomitant]
  8. KARY [Concomitant]
  9. BESOFTEN [Concomitant]
  10. RINDERON [Concomitant]

REACTIONS (1)
  - WHITE BLOOD CELL COUNT DECREASED [None]
